FAERS Safety Report 5136393-X (Version None)
Quarter: 2006Q4

REPORT INFORMATION
  Report Type: 
  Country: None (occurrence: None)
  Receive Date: 20061027
  Receipt Date: 20061020
  Transmission Date: 20070319
  Serious: Yes (Death, Other)
  Sender: FDA-Public Use
  Company Number: PHNU2006DE03496

PATIENT
  Age: 64 Year
  Sex: Female

DRUGS (1)
  1. STARLIX [Suspect]
     Indication: DIABETES MELLITUS

REACTIONS (16)
  - ALANINE AMINOTRANSFERASE INCREASED [None]
  - ASPARTATE AMINOTRANSFERASE INCREASED [None]
  - BLOOD CREATININE INCREASED [None]
  - BLOOD LACTATE DEHYDROGENASE INCREASED [None]
  - BLOOD LACTIC ACID INCREASED [None]
  - CARDIOVASCULAR DISORDER [None]
  - GAMMA-GLUTAMYLTRANSFERASE INCREASED [None]
  - GASTROENTERITIS [None]
  - LIVER DISORDER [None]
  - MULTI-ORGAN FAILURE [None]
  - NAUSEA [None]
  - PLATELET COUNT DECREASED [None]
  - PNEUMONIA [None]
  - PROTHROMBIN TIME PROLONGED [None]
  - SEPSIS [None]
  - VOMITING [None]
